FAERS Safety Report 9405564 (Version 1)
Quarter: 2013Q3

REPORT INFORMATION
  Report Type: Report from Study
  Country: UG (occurrence: GB)
  Receive Date: 20130717
  Receipt Date: 20130717
  Transmission Date: 20140515
  Serious: Yes (Death, Hospitalization, Other)
  Sender: FDA-Public Use
  Company Number: UG-009507513-1007USA01911

PATIENT
  Sex: Female

DRUGS (4)
  1. RALTEGRAVIR POTASSIUM [Suspect]
     Indication: HIV INFECTION
     Dosage: UNK
     Route: 048
     Dates: start: 20100513, end: 20100713
  2. ALUVIA [Suspect]
     Indication: HIV INFECTION
     Dosage: UNK
     Route: 048
     Dates: start: 20100513, end: 20100713
  3. AMOXICILLIN [Suspect]
     Dosage: UNK
     Dates: start: 20100610, end: 20100615
  4. CLOTRIMAZOLE [Suspect]
     Dosage: UNK
     Dates: start: 20050518, end: 20100713

REACTIONS (10)
  - Hepatic failure [Fatal]
  - Thrombocytopenia [Fatal]
  - Hypersensitivity [Fatal]
  - Bacterial sepsis [Fatal]
  - Jaundice [Not Recovered/Not Resolved]
  - Colitis [Not Recovered/Not Resolved]
  - Diarrhoea [Not Recovered/Not Resolved]
  - Vomiting [Not Recovered/Not Resolved]
  - Renal disorder [Unknown]
  - Hepatitis B [Unknown]
